FAERS Safety Report 4947643-4 (Version None)
Quarter: 2006Q1

REPORT INFORMATION
  Report Type: 
  Country: None (occurrence: None)
  Receive Date: 20060317
  Receipt Date: 20060317
  Transmission Date: 20060701
  Serious: Yes (Life-Threatening)
  Sender: FDA-Public Use
  Company Number: None

PATIENT
  Sex: Female
  Weight: 65.318 kg

DRUGS (1)
  1. ACETADOTE [Suspect]
     Indication: OVERDOSE
     Dosage: 9800 MG  ONE TIME  IV;  3250 MG -PARTIAL DOSE REC'D- ONE TIME  IV
     Route: 042
     Dates: start: 20060307, end: 20060307

REACTIONS (8)
  - BLOOD PRESSURE DECREASED [None]
  - BRONCHOSPASM [None]
  - ERYTHEMA [None]
  - INFUSION RELATED REACTION [None]
  - PRURITUS GENERALISED [None]
  - TACHYCARDIA [None]
  - URTICARIA [None]
  - WHEEZING [None]
